FAERS Safety Report 11010335 (Version 4)
Quarter: 2015Q3

REPORT INFORMATION
  Report Type: Report from Study
  Country: US (occurrence: US)
  Receive Date: 20150410
  Receipt Date: 20150928
  Transmission Date: 20151125
  Serious: No
  Sender: FDA-Public Use
  Company Number: US-AMGEN-USASL2015033756

PATIENT
  Age: 73 Year
  Sex: Male

DRUGS (3)
  1. CYCLOSPORINE. [Concomitant]
     Active Substance: CYCLOSPORINE
     Dosage: UNK
     Dates: start: 2014, end: 201503
  2. ENBREL [Suspect]
     Active Substance: ETANERCEPT
     Indication: PSORIASIS
     Dosage: 50 MG, 2 TIMES/WK
     Route: 065
     Dates: start: 20150109
  3. COSENTYX [Concomitant]
     Active Substance: SECUKINUMAB
     Dosage: 100 MG, QWK
     Route: 058

REACTIONS (11)
  - Skin plaque [Not Recovered/Not Resolved]
  - Pain in extremity [Unknown]
  - Skin ulcer [Not Recovered/Not Resolved]
  - Laceration [Unknown]
  - Musculoskeletal disorder [Not Recovered/Not Resolved]
  - Limb discomfort [Unknown]
  - Drug effect incomplete [Unknown]
  - Skin fissures [Unknown]
  - Blood creatinine increased [Recovered/Resolved]
  - Skin exfoliation [Unknown]
  - Mobility decreased [Unknown]

NARRATIVE: CASE EVENT DATE: 2015
